FAERS Safety Report 19868047 (Version 2)
Quarter: 2021Q4

REPORT INFORMATION
  Report Type: Spontaneous
  Country: DE (occurrence: DE)
  Receive Date: 20210922
  Receipt Date: 20211109
  Transmission Date: 20220303
  Serious: Yes (Hospitalization, Other)
  Sender: FDA-Public Use
  Company Number: DE-PFIZER INC-2021899342

PATIENT
  Sex: Male

DRUGS (2)
  1. VYNDAQEL [Suspect]
     Active Substance: TAFAMIDIS MEGLUMINE
     Indication: Cardiac amyloidosis
     Dosage: UNK
     Dates: start: 2019
  2. VYNDAQEL [Suspect]
     Active Substance: TAFAMIDIS MEGLUMINE
     Indication: Cardiac amyloidosis
     Dosage: UNK

REACTIONS (30)
  - Pyrexia [Unknown]
  - Myositis [Unknown]
  - Abscess [Unknown]
  - Staphylococcal sepsis [Unknown]
  - Arthritis [Unknown]
  - Inguinal hernia [Unknown]
  - Respiratory failure [Unknown]
  - Pleural effusion [Unknown]
  - Bradycardia [Unknown]
  - Cardiac failure [Unknown]
  - Joint effusion [Unknown]
  - Pneumonia [Unknown]
  - Hypokalaemia [Unknown]
  - Device related infection [Unknown]
  - Staphylococcal infection [Unknown]
  - Jugular vein thrombosis [Unknown]
  - Decubitus ulcer [Unknown]
  - Atrioventricular block [Unknown]
  - Skin laceration [Unknown]
  - Arthralgia [Unknown]
  - Muscle atrophy [Unknown]
  - Asthenia [Unknown]
  - Pancreatic cyst [Unknown]
  - Iron deficiency anaemia [Unknown]
  - Red blood cell count decreased [Unknown]
  - Haemoglobin decreased [Unknown]
  - Haematocrit decreased [Unknown]
  - White blood cell count decreased [Unknown]
  - Blood albumin decreased [Unknown]
  - Immunoglobulins increased [Unknown]

NARRATIVE: CASE EVENT DATE: 20200101
